FAERS Safety Report 20183265 (Version 1)
Quarter: 2021Q4

REPORT INFORMATION
  Report Type: Spontaneous
  Country: US (occurrence: US)
  Receive Date: 20211214
  Receipt Date: 20211214
  Transmission Date: 20220303
  Serious: No
  Sender: FDA-Public Use
  Company Number: US-ABBVIE-21K-163-3989759-00

PATIENT
  Sex: Female

DRUGS (1)
  1. IMBRUVICA [Suspect]
     Active Substance: IBRUTINIB
     Indication: Product used for unknown indication
     Route: 048

REACTIONS (6)
  - White blood cell count abnormal [Unknown]
  - Impaired healing [Unknown]
  - Ulcer [Unknown]
  - Arthropod bite [Unknown]
  - Staphylococcal infection [Unknown]
  - Therapeutic product effect decreased [Unknown]
